FAERS Safety Report 4663391-2 (Version None)
Quarter: 2005Q2

REPORT INFORMATION
  Report Type: 
  Country: None (occurrence: None)
  Receive Date: 20050513
  Receipt Date: 20050503
  Transmission Date: 20051028
  Serious: Yes (Hospitalization)
  Sender: FDA-Public Use
  Company Number: 214220

PATIENT
  Age: 11 Year
  Sex: Male
  Weight: 25.5 kg

DRUGS (5)
  1. NUTROPIN AQ [Suspect]
     Indication: BODY HEIGHT BELOW NORMAL
     Dosage: 1.4 MG, 6/WEEK, SUBCUTANEOUS
     Route: 058
     Dates: start: 20021014
  2. RISPERDAL [Concomitant]
  3. ZOLOFT [Concomitant]
  4. LAXATIVES NOS (LAXATIVES NOS) [Concomitant]
  5. ENEMA NOS (ENEMA NOS) [Concomitant]

REACTIONS (2)
  - DEHYDRATION [None]
  - FALL [None]
